FAERS Safety Report 6864949-2 (Version None)
Quarter: 2010Q3

REPORT INFORMATION
  Report Type: 
  Country: None (occurrence: None)
  Receive Date: 20100721
  Receipt Date: 20080410
  Transmission Date: 20110219
  Serious: Yes (Other)
  Sender: FDA-Public Use
  Company Number: US-PFIZER INC-2008032589

PATIENT
  Age: 30 Year
  Sex: Male

DRUGS (2)
  1. CHANTIX [Suspect]
     Dates: start: 20080301
  2. PERCOCET [Concomitant]
     Indication: JOINT INJURY

REACTIONS (1)
  - GRAND MAL CONVULSION [None]
